FAERS Safety Report 21789096 (Version 1)
Quarter: 2022Q4

REPORT INFORMATION
  Report Type: Spontaneous
  Country: JP (occurrence: JP)
  Receive Date: 20221228
  Receipt Date: 20221228
  Transmission Date: 20230112
  Serious: Yes (Other)
  Sender: FDA-Public Use
  Company Number: JP-SA-SAC20221226001173

PATIENT
  Age: 74 Year
  Sex: Male

DRUGS (1)
  1. AVAPRO [Suspect]
     Active Substance: IRBESARTAN
     Indication: Hypertension
     Dosage: 50 MG, QDY
     Route: 048

REACTIONS (2)
  - Scleroderma renal crisis [Unknown]
  - Systemic scleroderma [Unknown]
